FAERS Safety Report 23486761 (Version 1)
Quarter: 2024Q1

REPORT INFORMATION
  Report Type: Report from Study
  Country: NL (occurrence: NL)
  Receive Date: 20240206
  Receipt Date: 20240206
  Transmission Date: 20240409
  Serious: Yes (Other)
  Sender: FDA-Public Use
  Company Number: NL-ABBVIE-5626173

PATIENT
  Sex: Male

DRUGS (4)
  1. CARBIDOPA\LEVODOPA [Suspect]
     Active Substance: CARBIDOPA\LEVODOPA
     Indication: Parkinson^s disease
     Route: 050
     Dates: start: 20140925
  2. CARBIDOPA\LEVODOPA [Suspect]
     Active Substance: CARBIDOPA\LEVODOPA
     Dosage: MD 1.1 ML; CD 2.2 ML/H; ED 0.3 ML; END 0.3 ML; CND 0.6 ML?REMAINS AT 24 HOURS
     Route: 050
     Dates: start: 20240116
  3. CARBIDOPA\LEVODOPA [Suspect]
     Active Substance: CARBIDOPA\LEVODOPA
     Dosage: MD 1.1 ML; CD 2.3 ML/H; ED 0.6 ML; CND 0.6 ML?REMAINS AT 24 HOURS
     Route: 050
     Dates: start: 20231025, end: 20240116
  4. Microlax [Concomitant]
     Indication: Abnormal faeces
     Dosage: TIME INTERVAL: 0.33333333 WEEKS

REACTIONS (3)
  - Embedded device [Recovered/Resolved]
  - Device issue [Recovered/Resolved]
  - Cystitis noninfective [Unknown]
